FAERS Safety Report 7980413-1 (Version None)
Quarter: 2011Q4

REPORT INFORMATION
  Report Type: 
  Country: None (occurrence: None)
  Receive Date: 20111214
  Receipt Date: 20111213
  Transmission Date: 20120403
  Serious: Yes (Hospitalization)
  Sender: FDA-Public Use
  Company Number: FR-AMGEN-FRASP2011066203

PATIENT
  Age: 67 Year
  Sex: Male

DRUGS (4)
  1. OFLOXACIN [Concomitant]
     Dosage: 200 MG, UNK
     Route: 048
     Dates: start: 20111012, end: 20111013
  2. AUGMENTIN '125' [Suspect]
     Dosage: 1 G, UNK
     Route: 048
     Dates: start: 20111012, end: 20111012
  3. ROCEPHIN [Concomitant]
     Dosage: 1 G, UNK
     Route: 048
     Dates: start: 20111013, end: 20111013
  4. NEULASTA [Suspect]
     Indication: PRODUCT USED FOR UNKNOWN INDICATION
     Dosage: 6 MG, UNK
     Route: 058
     Dates: start: 20111012, end: 20111012

REACTIONS (3)
  - ANAPHYLACTOID REACTION [None]
  - RASH [None]
  - CIRCULATORY COLLAPSE [None]
